FAERS Safety Report 19633431 (Version 2)
Quarter: 2021Q4

REPORT INFORMATION
  Report Type: Report from Study
  Country: JP (occurrence: JP)
  Receive Date: 20210730
  Receipt Date: 20211009
  Transmission Date: 20220303
  Serious: Yes (Death, Other)
  Sender: FDA-Public Use
  Company Number: JP-KYOWAKIRIN-2019AKK020523

PATIENT
  Age: 85 Year
  Sex: Male

DRUGS (18)
  1. DARBEPOETIN ALFA [Suspect]
     Active Substance: DARBEPOETIN ALFA
     Indication: Myelodysplastic syndrome
     Dosage: 240 MICROGRAM, QWK
     Route: 058
     Dates: start: 20181018, end: 20181227
  2. DARBEPOETIN ALFA [Suspect]
     Active Substance: DARBEPOETIN ALFA
     Dosage: 120 MICROGRAM, QWK
     Route: 058
     Dates: start: 20190103, end: 20190314
  3. TENELIGLIPTIN [Concomitant]
     Active Substance: TENELIGLIPTIN
     Indication: Type 2 diabetes mellitus
     Dosage: UNK
     Route: 048
     Dates: end: 20190319
  4. REMITCH OD [Concomitant]
     Indication: Pruritus
     Dosage: UNK
     Route: 048
     Dates: end: 20190319
  5. CORTRIL [Concomitant]
     Active Substance: HYDROCORTISONE
     Indication: Adrenal insufficiency
     Dosage: UNK
     Route: 048
     Dates: end: 20190319
  6. LANSOPRAZOLE [Concomitant]
     Active Substance: LANSOPRAZOLE
     Indication: Bronchitis chronic
     Dosage: UNK
     Route: 048
     Dates: end: 20190319
  7. ROZEREM [Concomitant]
     Active Substance: RAMELTEON
     Indication: Insomnia
     Dosage: UNK
     Route: 048
     Dates: end: 20190319
  8. AZILSARTAN KAMEDOXOMIL [Concomitant]
     Active Substance: AZILSARTAN KAMEDOXOMIL
     Indication: Hypertension
     Dosage: UNK
     Route: 048
     Dates: end: 20181008
  9. AZILSARTAN KAMEDOXOMIL [Concomitant]
     Active Substance: AZILSARTAN KAMEDOXOMIL
     Dosage: UNK
     Route: 048
     Dates: end: 20190226
  10. CILNIDIPINE [Concomitant]
     Active Substance: CILNIDIPINE
     Indication: Hypertension
     Dosage: UNK
     Route: 048
     Dates: end: 20190319
  11. CILNIDIPINE [Concomitant]
     Active Substance: CILNIDIPINE
     Dosage: UNK
     Route: 048
     Dates: end: 20190226
  12. WARFARIN POTASSIUM [Concomitant]
     Active Substance: WARFARIN POTASSIUM
     Dosage: UNK
     Route: 048
     Dates: end: 20190319
  13. WARFARIN POTASSIUM [Concomitant]
     Active Substance: WARFARIN POTASSIUM
     Dosage: UNK
     Route: 048
     Dates: end: 20181225
  14. ALFACALCIDOL [Concomitant]
     Active Substance: ALFACALCIDOL
     Indication: Osteoporosis
     Dosage: UNK
     Route: 048
     Dates: end: 20190319
  15. TRANEXAMIC ACID [Concomitant]
     Active Substance: TRANEXAMIC ACID
     Dosage: 750 MILLIGRAM
     Route: 048
     Dates: start: 20190115, end: 20190120
  16. CELECOXIB [Concomitant]
     Active Substance: CELECOXIB
     Dosage: UNK
     Route: 048
     Dates: end: 20190319
  17. AVELOX [Concomitant]
     Active Substance: MOXIFLOXACIN HYDROCHLORIDE
     Dosage: UNK
     Route: 048
     Dates: end: 20190120
  18. PL [Concomitant]
     Active Substance: ACETAMINOPHEN\CAFFEINE\PROMETHAZINE\SALICYLAMIDE
     Dosage: UNK
     Route: 048
     Dates: end: 20190120

REACTIONS (7)
  - Muscle abscess [Fatal]
  - Staphylococcal sepsis [Fatal]
  - Meningitis bacterial [Fatal]
  - Cerebral infarction [Fatal]
  - Shunt stenosis [Recovered/Resolved]
  - Upper respiratory tract inflammation [Recovered/Resolved]
  - Pharyngitis [Recovered/Resolved]

NARRATIVE: CASE EVENT DATE: 20181110
